FAERS Safety Report 10006298 (Version 3)
Quarter: 2014Q2

REPORT INFORMATION
  Report Type: Report from Study
  Country: DE (occurrence: DE)
  Receive Date: 20140313
  Receipt Date: 20140411
  Transmission Date: 20141212
  Serious: Yes (Death)
  Sender: FDA-Public Use
  Company Number: DE-BEH-2014040990

PATIENT
  Age: 52 Year
  Sex: Male
  Weight: 53 kg

DRUGS (3)
  1. PRIVIGEN [Suspect]
     Indication: INFECTION
     Dates: start: 20140116, end: 20140116
  2. PRIVIGEN [Suspect]
     Indication: CHRONIC LYMPHOCYTIC LEUKAEMIA
     Dates: start: 20140116, end: 20140116
  3. PRIVIGEN [Suspect]
     Indication: SECONDARY IMMUNODEFICIENCY
     Dates: start: 20140116, end: 20140116

REACTIONS (1)
  - Sepsis [Fatal]
